FAERS Safety Report 4556563-9 (Version None)
Quarter: 2005Q1

REPORT INFORMATION
  Report Type: 
  Country: None (occurrence: None)
  Receive Date: 20050118
  Receipt Date: 20050107
  Transmission Date: 20050727
  Serious: Yes (Other)
  Sender: FDA-Public Use
  Company Number: 2005007583

PATIENT
  Sex: 0

DRUGS (1)
  1. VIAGRA [Suspect]
     Indication: ILL-DEFINED DISORDER
     Dosage: 50 MG (50 MG), ORAL
     Route: 048

REACTIONS (3)
  - DRUG INEFFECTIVE [None]
  - ROAD TRAFFIC ACCIDENT [None]
  - TRAUMATIC BRAIN INJURY [None]
